FAERS Safety Report 8516259-5 (Version None)
Quarter: 2012Q3

REPORT INFORMATION
  Report Type: 
  Country: None (occurrence: None)
  Receive Date: 20120717
  Receipt Date: 20120706
  Transmission Date: 20120928
  Serious: Yes (Hospitalization)
  Sender: FDA-Public Use
  Company Number: JP-009507513-1207JPN000087

PATIENT

DRUGS (16)
  1. TELAPREVIR [Suspect]
     Dosage: 1750 MG, QD
     Route: 048
     Dates: start: 20120606
  2. [THERAPY UNSPECIFIED] [Concomitant]
     Dosage: 2 DF, QD
     Route: 048
     Dates: start: 20120516
  3. REBETOL [Suspect]
     Dosage: 800 MG, QD
     Route: 048
     Dates: start: 20120425, end: 20120501
  4. REBETOL [Suspect]
     Dosage: 400 MG, QD
     Route: 048
     Dates: start: 20120517, end: 20120529
  5. REBETOL [Suspect]
     Dosage: 200MG/400MG/DAY
     Route: 048
     Dates: start: 20120530
  6. GOODMIN [Concomitant]
     Dosage: 0.25 MG, QD
     Route: 048
     Dates: start: 20120516
  7. PEG-INTRON [Suspect]
     Indication: HEPATITIS C
     Dosage: 120MCG/KG/WEEK
     Route: 058
     Dates: start: 20120404
  8. REBETOL [Suspect]
     Indication: HEPATITIS C
     Dosage: 1000 MG, QD
     Route: 048
     Dates: start: 20120404, end: 20120424
  9. REBETOL [Suspect]
     Dosage: 600 MG, QD
     Route: 048
     Dates: start: 20120502, end: 20120516
  10. TELAPREVIR [Suspect]
     Indication: HEPATITIS C
     Dosage: 2250 MG, QD
     Route: 048
     Dates: start: 20120404, end: 20120522
  11. GOODMIN [Concomitant]
     Indication: PROPHYLAXIS
     Dosage: 0.25 MG, QD
     Route: 048
     Dates: start: 20120404
  12. CELESTAMINE COMBINATION [Concomitant]
     Route: 048
     Dates: start: 20120606, end: 20120612
  13. NERISONA [Concomitant]
     Dosage: SINGLE USE
     Route: 061
     Dates: start: 20120606, end: 20120612
  14. TELAPREVIR [Suspect]
     Dosage: 2000 MG, QD
     Route: 048
     Dates: start: 20120523, end: 20120605
  15. DIOVAN [Concomitant]
     Indication: HYPERTENSION
     Dosage: 80 MG, QD
     Route: 048
  16. [THERAPY UNSPECIFIED] [Concomitant]
     Indication: PROPHYLAXIS
     Dosage: 6 DF, QD
     Route: 048

REACTIONS (4)
  - INSOMNIA [None]
  - SLEEP DISORDER [None]
  - MALAISE [None]
  - ANAEMIA [None]
